FAERS Safety Report 11209595 (Version 1)
Quarter: 2015Q2

REPORT INFORMATION
  Report Type: Spontaneous
  Country: IE (occurrence: IE)
  Receive Date: 20150622
  Receipt Date: 20150622
  Transmission Date: 20150821
  Serious: Yes (Hospitalization)
  Sender: FDA-Public Use
  Company Number: IE-FRESENIUS KABI-FK201502809

PATIENT
  Age: 70 Year
  Sex: Female

DRUGS (2)
  1. ZOLEDRONIC ACID (MANUFACTURER UNKNOWN) (ZOLEDRONIC ACID) (ZOLEDRONIC ACID) [Suspect]
     Active Substance: ZOLEDRONIC ACID
     Indication: OSTEOPOROSIS
     Route: 042
  2. ALENDRONATE (MANUFACTURER UNKNOWN) [Suspect]
     Active Substance: ALENDRONATE SODIUM
     Indication: OSTEOPOROSIS
     Route: 065
     Dates: start: 200704, end: 200902

REACTIONS (1)
  - Joint ankylosis [Recovered/Resolved]
